FAERS Safety Report 11625982 (Version 1)
Quarter: 2015Q4

REPORT INFORMATION
  Report Type: Other
  Country: US (occurrence: US)
  Receive Date: 20151013
  Receipt Date: 20151013
  Transmission Date: 20160304
  Serious: Yes (Other)
  Sender: FDA-Public Use
  Company Number: US-ENDO PHARMACEUTICALS INC-2015-003247

PATIENT
  Age: 65 Year
  Sex: Male

DRUGS (2)
  1. RISPERIDONE TABLETS 2MG [Suspect]
     Active Substance: RISPERIDONE
     Indication: SCHIZOPHRENIA, PARANOID TYPE
     Route: 048
  2. CLONAZEPAM 1MG [Concomitant]
     Active Substance: CLONAZEPAM
     Indication: SCHIZOPHRENIA, PARANOID TYPE
     Route: 048

REACTIONS (1)
  - Spasmodic dysphonia [Recovering/Resolving]
